FAERS Safety Report 8599204-6 (Version None)
Quarter: 2012Q3

REPORT INFORMATION
  Report Type: 
  Country: None (occurrence: None)
  Receive Date: 20120816
  Receipt Date: 20110915
  Transmission Date: 20120928
  Serious: No
  Sender: FDA-Public Use
  Company Number: US-AMGEN-USASP2011047583

PATIENT
  Age: 61 Year
  Sex: Female

DRUGS (11)
  1. PANTOPRAZOLE [Concomitant]
  2. NEUPOGEN [Suspect]
     Indication: HAEMATOPOIETIC STEM CELL MOBILISATION
     Dosage: 960 MUG, QD
     Dates: start: 20110905, end: 20110907
  3. BUTALBITAL AND ACETAMINOPHEN [Concomitant]
  4. VITAMIN D [Concomitant]
  5. NORCO [Concomitant]
  6. GLUCOSAMINE [Concomitant]
  7. VITAMIN E [Concomitant]
  8. NEUPOGEN [Suspect]
     Dosage: 1440 MUG, QD
     Dates: start: 20110908, end: 20110910
  9. AMBIEN [Concomitant]
  10. MULTI-VITAMIN [Concomitant]
  11. CALCIUM CARBONATE [Concomitant]

REACTIONS (2)
  - DYSPNOEA [None]
  - CHEST DISCOMFORT [None]
